FAERS Safety Report 22071750 (Version 1)
Quarter: 2023Q1

REPORT INFORMATION
  Report Type: Spontaneous
  Country: US (occurrence: US)
  Receive Date: 20230307
  Receipt Date: 20230307
  Transmission Date: 20230417
  Serious: Yes (Other)
  Sender: FDA-Public Use
  Company Number: US-BRISTOL-MYERS SQUIBB COMPANY-2023-030152

PATIENT
  Age: 88 Year
  Sex: Female
  Weight: 47.627 kg

DRUGS (1)
  1. REVLIMID [Suspect]
     Active Substance: LENALIDOMIDE
     Indication: Myelodysplastic syndrome
     Dosage: DAILY X 28 DAYS
     Route: 048
     Dates: start: 20181017

REACTIONS (1)
  - Drug ineffective [Not Recovered/Not Resolved]
